FAERS Safety Report 7536678 (Version 6)
Quarter: 2013Q4

REPORT INFORMATION
  Report Type: Report from Study
  Country: GB (occurrence: GB)
  Receive Date: 20100811
  Receipt Date: 20131108
  Transmission Date: 20140711
  Serious: Yes (Hospitalization, Other)
  Sender: FDA-Public Use
  Company Number: GB-BRISTOL-MYERS SQUIBB COMPANY-15229289

PATIENT
  Age: 71 Year
  Sex: Male

DRUGS (3)
  1. CETUXIMAB [Suspect]
     Indication: OESOPHAGEAL CARCINOMA
     Dosage: RECENT INF:21DEC2009
     Route: 042
     Dates: start: 20091016, end: 20100104
  2. CISPLATIN FOR INJ [Suspect]
     Indication: OESOPHAGEAL CARCINOMA
     Dosage: RECENT INF:21DEC2009
     Route: 042
     Dates: start: 20091016, end: 20091221
  3. CAPECITABINE [Suspect]
     Indication: OESOPHAGEAL CARCINOMA
     Dosage: RECENT INF:23DEC2009
     Route: 048
     Dates: start: 20091016, end: 20100108

REACTIONS (2)
  - Chest pain [Recovered/Resolved]
  - Oesophagitis [Not Recovered/Not Resolved]
